FAERS Safety Report 9403199 (Version 1)
Quarter: 2013Q3

REPORT INFORMATION
  Report Type: Spontaneous
  Country: US (occurrence: None)
  Receive Date: 20130712
  Receipt Date: 20130712
  Transmission Date: 20140515
  Serious: Yes (Other)
  Sender: FDA-Public Use
  Company Number: 001564471A

PATIENT
  Age: 17 Year
  Sex: Male

DRUGS (3)
  1. PROACTIV [Suspect]
     Indication: ACNE
     Dosage: TWICE DAIY DERMAL
     Dates: start: 20130528, end: 20130530
  2. PROACTIV REFINING MASK [Suspect]
     Indication: ACNE
     Dosage: TWICE DAILY DERMAL
     Dates: start: 20130528, end: 20130530
  3. PROACTIV DARK SPOT CORRECTOR [Suspect]
     Indication: ACNE
     Dosage: TWICE DAILY DERMAL
     Dates: start: 20130528, end: 20130530

REACTIONS (6)
  - Hypersensitivity [None]
  - Swelling face [None]
  - Erythema [None]
  - Pruritus [None]
  - Burning sensation [None]
  - Eye swelling [None]
